FAERS Safety Report 20597209 (Version 1)
Quarter: 2022Q1

REPORT INFORMATION
  Report Type: Spontaneous
  Country: US (occurrence: US)
  Receive Date: 20220315
  Receipt Date: 20220315
  Transmission Date: 20220423
  Serious: No
  Sender: FDA-Public Use
  Company Number: US-PFIZER INC-2020395711

PATIENT
  Age: 75 Year
  Sex: Male

DRUGS (4)
  1. SOMAVERT [Suspect]
     Active Substance: PEGVISOMANT
     Dosage: 10 MG, WEEKLY
     Dates: start: 201803
  2. SOMAVERT [Suspect]
     Active Substance: PEGVISOMANT
     Dosage: 10 MG, 2X/WEEK
     Dates: start: 20201012
  3. SOMAVERT [Suspect]
     Active Substance: PEGVISOMANT
     Dosage: 10 MG, WEEKLY
     Dates: start: 20210215
  4. SOMAVERT [Suspect]
     Active Substance: PEGVISOMANT
     Dosage: 10 MG
     Dates: start: 20210204

REACTIONS (7)
  - Constipation [Unknown]
  - Dyspnoea [Unknown]
  - Headache [Unknown]
  - Intentional product misuse [Unknown]
  - Poor quality device used [Unknown]
  - Syringe issue [Unknown]
  - Needle issue [Unknown]
